FAERS Safety Report 12275716 (Version 1)
Quarter: 2016Q2

REPORT INFORMATION
  Report Type: Spontaneous
  Country: CN (occurrence: CN)
  Receive Date: 20160418
  Receipt Date: 20160418
  Transmission Date: 20160815
  Serious: Yes (Hospitalization)
  Sender: FDA-Public Use
  Company Number: CN-ROCHE-1741319

PATIENT
  Sex: Female
  Weight: 50 kg

DRUGS (4)
  1. CEFIXIME. [Concomitant]
     Active Substance: CEFIXIME
     Route: 065
  2. SODIUM CHLORIDE. [Suspect]
     Active Substance: SODIUM CHLORIDE
     Indication: CHOLECYSTITIS
     Route: 041
     Dates: start: 20151204, end: 20151207
  3. ROCEPHIN [Suspect]
     Active Substance: CEFTRIAXONE SODIUM
     Indication: CHOLECYSTITIS
     Route: 041
     Dates: start: 20151204, end: 20151212
  4. METRONIDAZOLE. [Suspect]
     Active Substance: METRONIDAZOLE
     Indication: CHOLECYSTITIS
     Route: 041
     Dates: start: 20151204, end: 20151207

REACTIONS (1)
  - Psychotic disorder [Recovering/Resolving]
